FAERS Safety Report 5963825-7 (Version None)
Quarter: 2008Q4

REPORT INFORMATION
  Report Type: 
  Country: None (occurrence: None)
  Receive Date: 20081124
  Receipt Date: 20070614
  Transmission Date: 20090506
  Serious: No
  Sender: FDA-Public Use
  Company Number: US-TEVA-169040USA

PATIENT
  Sex: Male

DRUGS (1)
  1. SALBUTAMOL SULFATE INHALATION, 0.09 MG [Suspect]
     Indication: ASTHMA
     Route: 055

REACTIONS (9)
  - CONSTIPATION [None]
  - DISTURBANCE IN ATTENTION [None]
  - DRUG INEFFECTIVE [None]
  - ERECTILE DYSFUNCTION [None]
  - FATIGUE [None]
  - INCREASED APPETITE [None]
  - INSOMNIA [None]
  - WEIGHT INCREASED [None]
  - WITHDRAWAL SYNDROME [None]
